FAERS Safety Report 25772402 (Version 2)
Quarter: 2025Q4

REPORT INFORMATION
  Report Type: Spontaneous
  Country: US (occurrence: US)
  Receive Date: 20250908
  Receipt Date: 20251124
  Transmission Date: 20260118
  Serious: No
  Sender: SUNOVION
  Company Number: US-SMPA-2025SPA011210

PATIENT
  Age: 74 Year
  Sex: Male

DRUGS (8)
  1. ORGOVYX [Suspect]
     Active Substance: RELUGOLIX
     Indication: Prostate cancer
     Dosage: 360 MG, SINGLE
     Route: 048
  2. ORGOVYX [Suspect]
     Active Substance: RELUGOLIX
     Dosage: 120 MG, QD
     Route: 048
  3. CIALIS [Concomitant]
     Active Substance: TADALAFIL
  4. FINASTERIDE [Concomitant]
     Active Substance: FINASTERIDE
  5. LOSARTAN [Concomitant]
     Active Substance: LOSARTAN
  6. VITAMINS [Concomitant]
     Active Substance: VITAMINS
  7. SINGULAIR [Concomitant]
     Active Substance: MONTELUKAST SODIUM
  8. TAMSULOSIN [Concomitant]
     Active Substance: TAMSULOSIN

REACTIONS (3)
  - Dizziness [Unknown]
  - Nausea [Unknown]
  - Asthenia [Unknown]
